FAERS Safety Report 9440582 (Version 1)
Quarter: 2013Q3

REPORT INFORMATION
  Report Type: Spontaneous
  Country: SE (occurrence: SE)
  Receive Date: 20130805
  Receipt Date: 20130805
  Transmission Date: 20140515
  Serious: Yes (Hospitalization)
  Sender: FDA-Public Use
  Company Number: SE-JNJFOC-20130718911

PATIENT
  Age: 67 Year
  Sex: Female

DRUGS (6)
  1. REMICADE [Suspect]
     Indication: RHEUMATOID ARTHRITIS
     Dosage: 100 MG
     Route: 042
     Dates: start: 20121218, end: 20130603
  2. LEVAXIN [Concomitant]
     Route: 065
  3. TROMBYL [Concomitant]
     Route: 065
  4. METHOTREXATE [Concomitant]
     Route: 065
  5. FOLACIN [Concomitant]
     Route: 065
  6. ALVEDON [Concomitant]
     Route: 065

REACTIONS (1)
  - Diverticulitis [Not Recovered/Not Resolved]
